FAERS Safety Report 26129824 (Version 1)
Quarter: 2025Q4

REPORT INFORMATION
  Report Type: Spontaneous
  Country: EU (occurrence: EU)
  Receive Date: 20251208
  Receipt Date: 20251208
  Transmission Date: 20260118
  Serious: Yes (Hospitalization, Other)
  Sender: BAXTER
  Company Number: None

PATIENT
  Age: 74 Year
  Sex: Female
  Weight: 62 kg

DRUGS (3)
  1. CYCLOPHOSPHAMIDE [Suspect]
     Active Substance: CYCLOPHOSPHAMIDE
     Indication: Invasive ductal breast carcinoma
     Dosage: 190 MG CYCLICAL (190MG 1ST CYCLE)
     Route: 042
     Dates: start: 20250924, end: 20250924
  2. KEYTRUDA [Suspect]
     Active Substance: PEMBROLIZUMAB
     Indication: Invasive ductal breast carcinoma
     Dosage: 124 MG (CYCLICAL) 124MG/CYCLE. 24/09/2025 4TH CYCLE
     Route: 042
     Dates: start: 20250612, end: 20250924
  3. EPIRUBICIN [Suspect]
     Active Substance: EPIRUBICIN
     Indication: Invasive ductal breast carcinoma
     Dosage: 190 MG CYCLICAL (190MG 1ST CYCLE)
     Route: 042
     Dates: start: 20250924, end: 20250924

REACTIONS (3)
  - Immune-mediated pancreatitis [Recovered/Resolved]
  - Immune-mediated hepatitis [Recovered/Resolved]
  - Hyperbilirubinaemia [Recovered/Resolved]

NARRATIVE: CASE EVENT DATE: 20250926
